FAERS Safety Report 4601254-9 (Version None)
Quarter: 2005Q1

REPORT INFORMATION
  Report Type: 
  Country: None (occurrence: None)
  Receive Date: 20050304
  Receipt Date: 20050210
  Transmission Date: 20050727
  Serious: Yes (Hospitalization)
  Sender: FDA-Public Use
  Company Number: 2005000393

PATIENT
  Age: 59 Year
  Sex: Female
  Weight: 72.5755 kg

DRUGS (6)
  1. TARCEVA [Suspect]
     Indication: LUNG CANCER METASTATIC
     Dosage: 150 MG (QD), ORAL
     Route: 048
     Dates: start: 20050113, end: 20050204
  2. OXYCONTIN (OXOCODONE HYDROCHLORIDE) [Concomitant]
  3. XANAX [Concomitant]
  4. LORTAB [Concomitant]
  5. EPOGEN [Concomitant]
  6. NYSTATIN [Concomitant]

REACTIONS (9)
  - CONJUNCTIVITIS [None]
  - DISEASE PROGRESSION [None]
  - DYSPNOEA [None]
  - RASH GENERALISED [None]
  - RASH MORBILLIFORM [None]
  - RASH PAPULAR [None]
  - RASH VESICULAR [None]
  - STOMATITIS [None]
  - TREATMENT NONCOMPLIANCE [None]
